FAERS Safety Report 11026138 (Version 1)
Quarter: 2015Q2

REPORT INFORMATION
  Report Type: Spontaneous
  Country: US (occurrence: None)
  Receive Date: 20150413
  Receipt Date: 20150413
  Transmission Date: 20150821
  Serious: No
  Sender: FDA-Public Use
  Company Number: None

PATIENT
  Age: 85 Year
  Sex: Male
  Weight: 65.77 kg

DRUGS (8)
  1. GABAPENTIN 300 MG CAP AMN GENERIC FOR NEURONTIN 300 MG-CAP [Suspect]
     Active Substance: GABAPENTIN
     Indication: BACK PAIN
     Dosage: 300 MG?2 PILLS 3X @ DAY?6 PER DAY?BY MOUTH
     Route: 048
     Dates: start: 20150101, end: 20150225
  2. FISH OIL [Concomitant]
     Active Substance: FISH OIL
  3. VITAMIN D [Concomitant]
     Active Substance: CHOLECALCIFEROL
  4. VESICARE [Concomitant]
     Active Substance: SOLIFENACIN SUCCINATE
  5. GLUCOSAMINE CHONDROITIN [Concomitant]
     Active Substance: CHONDROITIN SULFATE (BOVINE)\GLUCOSAMINE HYDROCHLORIDE
  6. VITAMIN C [Concomitant]
     Active Substance: ASCORBIC ACID
  7. GABAPENTIN 300 MG CAP AMN GENERIC FOR NEURONTIN 300 MG-CAP [Suspect]
     Active Substance: GABAPENTIN
     Indication: PAIN IN EXTREMITY
     Dosage: 300 MG?2 PILLS 3X @ DAY?6 PER DAY?BY MOUTH
     Route: 048
     Dates: start: 20150101, end: 20150225
  8. FLOMAX [Concomitant]
     Active Substance: TAMSULOSIN HYDROCHLORIDE

REACTIONS (3)
  - Urinary incontinence [None]
  - Adverse drug reaction [None]
  - Enuresis [None]

NARRATIVE: CASE EVENT DATE: 20150101
